FAERS Safety Report 9782964 (Version 1)
Quarter: 2013Q4

REPORT INFORMATION
  Report Type: Spontaneous
  Country: US (occurrence: US)
  Receive Date: 20131226
  Receipt Date: 20131226
  Transmission Date: 20140711
  Serious: Yes (Hospitalization)
  Sender: FDA-Public Use
  Company Number: US-INCYTE CORPORATION-2013IN003060

PATIENT
  Age: 65 Year
  Sex: Female

DRUGS (4)
  1. JAKAFI [Suspect]
     Indication: BLOOD DISORDER
     Dosage: 15 MG, BID
     Route: 048
     Dates: start: 20120307
  2. FLUOXETINE HCL [Concomitant]
  3. PERCOCET                           /00867901/ [Concomitant]
  4. MORPHINE SULFATE ER [Concomitant]

REACTIONS (1)
  - Leukaemia [Unknown]
